FAERS Safety Report 11385798 (Version 10)
Quarter: 2017Q2

REPORT INFORMATION
  Report Type: Report from Study
  Country: CA (occurrence: CA)
  Receive Date: 20150817
  Receipt Date: 20170601
  Transmission Date: 20170829
  Serious: Yes (Hospitalization, Other)
  Sender: FDA-Public Use
  Company Number: CA-ROCHE-1185113

PATIENT
  Age: 61 Year
  Sex: Male
  Weight: 108.9 kg

DRUGS (14)
  1. DIPHENHYDRAMINE HCL [Concomitant]
     Active Substance: DIPHENHYDRAMINE HYDROCHLORIDE
     Indication: PREMEDICATION
     Route: 048
     Dates: start: 20120409
  2. ACETAMINOPHEN. [Concomitant]
     Active Substance: ACETAMINOPHEN
     Indication: PREMEDICATION
     Route: 048
     Dates: start: 20120409
  3. FOLIC ACID. [Concomitant]
     Active Substance: FOLIC ACID
  4. RAMIPRIL. [Concomitant]
     Active Substance: RAMIPRIL
  5. RITUXAN [Suspect]
     Active Substance: RITUXIMAB
     Indication: RHEUMATOID ARTHRITIS
     Dosage: LAST DOSE OF RITUXIMAB 18/FEB/2015
     Route: 042
     Dates: start: 20120409
  6. RITUXAN [Suspect]
     Active Substance: RITUXIMAB
     Route: 042
     Dates: start: 20150206
  7. HYDROCHLOROTHIAZIDE. [Concomitant]
     Active Substance: HYDROCHLOROTHIAZIDE
  8. DICLOFENAC [Concomitant]
     Active Substance: DICLOFENAC
  9. METHOTREXATE. [Concomitant]
     Active Substance: METHOTREXATE
  10. TYLENOL WITH CODEINE [Concomitant]
     Active Substance: ACETAMINOPHEN\CODEINE PHOSPHATE
  11. RITUXAN [Suspect]
     Active Substance: RITUXIMAB
     Route: 042
     Dates: start: 20140206
  12. RITUXAN [Suspect]
     Active Substance: RITUXIMAB
     Dosage: PREVIOUS RITUXIMAB DOSE WAS RECEIVED ON 05/JAN/2017
     Route: 042
     Dates: start: 20150218
  13. ARTHROTEC [Concomitant]
     Active Substance: DICLOFENAC SODIUM\MISOPROSTOL
  14. METHYLPREDNISOLONE. [Concomitant]
     Active Substance: METHYLPREDNISOLONE
     Indication: PREMEDICATION
     Route: 042
     Dates: start: 20120409

REACTIONS (19)
  - Infusion related reaction [Recovered/Resolved]
  - Biliary colic [Unknown]
  - Productive cough [Not Recovered/Not Resolved]
  - Viral upper respiratory tract infection [Recovered/Resolved]
  - Infusion related reaction [Unknown]
  - Blood pressure systolic increased [Unknown]
  - Aphthous ulcer [Recovered/Resolved]
  - Limb injury [Unknown]
  - Oxygen saturation decreased [Unknown]
  - Blood pressure fluctuation [Unknown]
  - Blood pressure increased [Unknown]
  - Body temperature decreased [Unknown]
  - Blood pressure increased [Unknown]
  - Chest pain [Not Recovered/Not Resolved]
  - Oxygen saturation decreased [Unknown]
  - Abdominal pain [Unknown]
  - Heart valve incompetence [Unknown]
  - Blood pressure diastolic decreased [Unknown]
  - Bronchitis [Unknown]

NARRATIVE: CASE EVENT DATE: 201301
